FAERS Safety Report 16190979 (Version 1)
Quarter: 2019Q2

REPORT INFORMATION
  Report Type: Spontaneous
  Country: US (occurrence: US)
  Receive Date: 20190412
  Receipt Date: 20190412
  Transmission Date: 20190711
  Serious: No
  Sender: FDA-Public Use
  Company Number: US-ALKERMES INC.-ALK-2019-001885

PATIENT
  Age: 47 Year
  Sex: Male
  Weight: 106.58 kg

DRUGS (2)
  1. OTHER THERAPEUTIC PRODUCTS [Concomitant]
     Active Substance: UNSPECIFIED INGREDIENT
     Indication: CARDIAC DISORDER
     Dosage: UNK
     Route: 065
  2. VIVITROL [Suspect]
     Active Substance: NALTREXONE
     Indication: ALCOHOLISM
     Dosage: 380 MG, QMO
     Route: 030
     Dates: start: 201812

REACTIONS (8)
  - Injection site reaction [Recovered/Resolved]
  - Eye swelling [Not Recovered/Not Resolved]
  - Hypersensitivity [Not Recovered/Not Resolved]
  - Urticaria [Not Recovered/Not Resolved]
  - Injection site urticaria [Recovered/Resolved]
  - Swelling face [Not Recovered/Not Resolved]
  - Blister [Not Recovered/Not Resolved]
  - Blood blister [Unknown]

NARRATIVE: CASE EVENT DATE: 201903
